FAERS Safety Report 5677603-X (Version None)
Quarter: 2008Q1

REPORT INFORMATION
  Report Type: 
  Country: None (occurrence: None)
  Receive Date: 20080318
  Receipt Date: 20080312
  Transmission Date: 20080703
  Serious: Yes (Hospitalization)
  Sender: FDA-Public Use
  Company Number: 2008NI0046

PATIENT
  Sex: Female

DRUGS (1)
  1. NITROLINGUAL PUMPSPRAY [Suspect]

REACTIONS (1)
  - SWOLLEN TONGUE [None]
